FAERS Safety Report 17296892 (Version 1)
Quarter: 2020Q1

REPORT INFORMATION
  Report Type: Spontaneous
  Country: US (occurrence: US)
  Receive Date: 20200121
  Receipt Date: 20200121
  Transmission Date: 20200409
  Serious: No
  Sender: FDA-Public Use
  Company Number: US-ANIPHARMA-2019-US-003350

PATIENT
  Age: 64 Year
  Sex: Male

DRUGS (1)
  1. HYDROCORTISONE RECTAL SUSPENSION, USP 16 OZ [Suspect]
     Active Substance: HYDROCORTISONE
     Indication: PRODUCT USED FOR UNKNOWN INDICATION
     Dates: start: 20190208

REACTIONS (1)
  - Intentional product misuse [Unknown]
